FAERS Safety Report 20246990 (Version 1)
Quarter: 2021Q4

REPORT INFORMATION
  Report Type: Spontaneous
  Country: DE (occurrence: DE)
  Receive Date: 20211229
  Receipt Date: 20211229
  Transmission Date: 20220304
  Serious: Yes (Other)
  Sender: FDA-Public Use
  Company Number: DE-002147023-NVSC2021DE268798

PATIENT
  Age: 85 Year
  Sex: Male

DRUGS (13)
  1. BISOPROLOL [Suspect]
     Active Substance: BISOPROLOL
     Indication: Product used for unknown indication
     Dosage: 2 DOSAGE FORM, QD, 1 DF, BID
     Route: 065
  2. SALBUHEXAL [Suspect]
     Active Substance: ALBUTEROL
     Indication: Secretion discharge
     Dosage: 2 DOSAGE FORM, QD, 2 DF, QD
     Route: 065
  3. TORSEMIDE [Concomitant]
     Active Substance: TORSEMIDE
     Indication: Product used for unknown indication
     Dosage: 2 DOSAGE FORM, QD, 1 DF, BID
     Route: 065
  4. ESOMEPRAZOLE [Concomitant]
     Active Substance: ESOMEPRAZOLE
     Indication: Product used for unknown indication
     Dosage: 1 DOSAGE FORM, QD, 1 DF, QD
     Route: 065
  5. SPIRONOLACTONE [Concomitant]
     Active Substance: SPIRONOLACTONE
     Indication: Product used for unknown indication
     Dosage: 1 DOSAGE FORM, QD, 1 DF, QD
     Route: 065
  6. TAMSULOSIN [Concomitant]
     Active Substance: TAMSULOSIN
     Indication: Product used for unknown indication
     Dosage: 1 DOSAGE FORM, QD, 1 DF, QD
     Route: 065
  7. Keltican [Concomitant]
     Indication: Product used for unknown indication
     Dosage: UNK, QD
     Route: 065
  8. FOLPLUS [Concomitant]
     Indication: Product used for unknown indication
     Dosage: UNK, QD
     Route: 065
  9. ELIQUIS [Concomitant]
     Active Substance: APIXABAN
     Indication: Product used for unknown indication
     Dosage: 2 DOSAGE FORM, QD, 1 DF, BID
     Route: 065
  10. XIPAMIDE [Concomitant]
     Active Substance: XIPAMIDE
     Indication: Product used for unknown indication
     Dosage: 1 DOSAGE FORM, QD, 1 DF, QD
     Route: 065
  11. CANDESARTAN CILEXETIL\HYDROCHLOROTHIAZIDE [Concomitant]
     Active Substance: CANDESARTAN CILEXETIL\HYDROCHLOROTHIAZIDE
     Indication: Product used for unknown indication
     Dosage: 1 DOSAGE FORM, QD, 1 DF, QD
     Route: 065
  12. THEOPHYLLINE ANHYDROUS [Concomitant]
     Active Substance: THEOPHYLLINE ANHYDROUS
     Indication: Product used for unknown indication
     Dosage: 600 MILLIGRAM, QD, 600 MG, QD
     Route: 065
  13. FORADIL [Concomitant]
     Active Substance: FORMOTEROL FUMARATE
     Indication: Product used for unknown indication
     Dosage: UNK UNK, BID
     Route: 065

REACTIONS (4)
  - Smallpox [Unknown]
  - Discomfort [Unknown]
  - Erythema [Unknown]
  - Incorrect dose administered [Unknown]
